FAERS Safety Report 15080391 (Version 3)
Quarter: 2018Q3

REPORT INFORMATION
  Report Type: Spontaneous
  Country: US (occurrence: US)
  Receive Date: 20180628
  Receipt Date: 20180810
  Transmission Date: 20181010
  Serious: Yes (Hospitalization, Other)
  Sender: FDA-Public Use
  Company Number: US-ROCHE-2141933

PATIENT
  Age: 62 Year
  Sex: Male

DRUGS (6)
  1. OCREVUS [Suspect]
     Active Substance: OCRELIZUMAB
     Indication: MULTIPLE SCLEROSIS
     Route: 042
     Dates: start: 20180426
  2. PREDNISONE. [Concomitant]
     Active Substance: PREDNISONE
     Dosage: REDUCING BY 10MG EVERY WEEK
     Route: 048
  3. GABAPENTIN. [Concomitant]
     Active Substance: GABAPENTIN
  4. TYSABRI [Suspect]
     Active Substance: NATALIZUMAB
     Indication: MULTIPLE SCLEROSIS
     Route: 065
     Dates: start: 2007, end: 200912
  5. OCREVUS [Suspect]
     Active Substance: OCRELIZUMAB
     Route: 042
     Dates: start: 20180511
  6. SOLU?MEDROL [Concomitant]
     Active Substance: METHYLPREDNISOLONE SODIUM SUCCINATE
     Route: 042

REACTIONS (11)
  - Thinking abnormal [Unknown]
  - Depression [Unknown]
  - Muscular weakness [Unknown]
  - Pain in extremity [Unknown]
  - Hypotension [Unknown]
  - Asthenia [Unknown]
  - Facial paresis [Unknown]
  - Encephalopathy [Unknown]
  - Muscle spasticity [Unknown]
  - Hypoaesthesia [Unknown]
  - Progressive multifocal leukoencephalopathy [Unknown]

NARRATIVE: CASE EVENT DATE: 20180313
